FAERS Safety Report 5633457-9 (Version None)
Quarter: 2008Q1

REPORT INFORMATION
  Report Type: 
  Country: None (occurrence: None)
  Receive Date: 20080221
  Receipt Date: 20080213
  Transmission Date: 20080703
  Serious: Yes (Other)
  Sender: FDA-Public Use
  Company Number: GB-ELI_LILLY_AND_COMPANY-GB200802003533

PATIENT
  Age: 45 Year
  Sex: Male
  Weight: 92.5 kg

DRUGS (3)
  1. DULOXETINE HYDROCHLORIDE [Suspect]
     Indication: DEPRESSION
     Dosage: 60 MG, UNKNOWN
     Route: 048
     Dates: start: 20071101, end: 20080110
  2. ERYTHROMYCIN [Concomitant]
     Indication: INFECTION
     Dosage: 250 MG, 4/D
     Route: 048
     Dates: start: 20070124, end: 20071030
  3. ESCITALOPRAM [Concomitant]
     Indication: DEPRESSION
     Dosage: 20 MG, UNKNOWN
     Route: 048
     Dates: start: 20061121, end: 20071030

REACTIONS (3)
  - ALCOHOL INTERACTION [None]
  - NEGATIVE THOUGHTS [None]
  - SUICIDAL IDEATION [None]
